FAERS Safety Report 8341458-5 (Version None)
Quarter: 2012Q2

REPORT INFORMATION
  Report Type: 
  Country: None (occurrence: None)
  Receive Date: 20120507
  Receipt Date: 20120501
  Transmission Date: 20120825
  Serious: No
  Sender: FDA-Public Use
  Company Number: US-B.I. PHARMACEUTICALS,INC./RIDGEFIELD-2012-BP-09875BP

PATIENT
  Age: 58 Year
  Sex: Female

DRUGS (8)
  1. MIRAPEX [Suspect]
     Indication: PARKINSON'S DISEASE
     Dosage: 4.5 MG
     Route: 048
     Dates: start: 20120417
  2. AMBIEN [Concomitant]
     Indication: INSOMNIA
     Dosage: 10 MG
     Route: 048
  3. CYMBALTA [Concomitant]
     Indication: DEPRESSION
     Route: 048
  4. MIRALAX [Concomitant]
     Indication: CONSTIPATION
     Route: 048
  5. XANAX [Concomitant]
     Indication: ANXIETY
     Route: 048
  6. LEVOTHYROXINE SODIUM [Concomitant]
     Indication: HYPOTHYROIDISM
     Dosage: 125 MCG
     Route: 048
  7. SENOKOT [Concomitant]
     Indication: CONSTIPATION
     Route: 048
  8. VITAMIN D [Concomitant]
     Indication: ROUTINE HEALTH MAINTENANCE
     Dosage: 50000 RT
     Route: 048

REACTIONS (4)
  - DIARRHOEA [None]
  - DYSPEPSIA [None]
  - ARTHRALGIA [None]
  - TREMOR [None]
